FAERS Safety Report 9637889 (Version 2)
Quarter: 2014Q1

REPORT INFORMATION
  Report Type: Spontaneous
  Country: US (occurrence: US)
  Receive Date: 20131022
  Receipt Date: 20140204
  Transmission Date: 20141002
  Serious: No
  Sender: FDA-Public Use
  Company Number: US-009507513-1310USA009837

PATIENT
  Sex: Female

DRUGS (2)
  1. ZEGERID OTC CAPSULES [Suspect]
     Indication: GASTROOESOPHAGEAL REFLUX DISEASE
     Dosage: 20 MG, QD
     Route: 048
     Dates: start: 2011
  2. ZEGERID OTC CAPSULES [Suspect]
     Indication: DYSPEPSIA

REACTIONS (3)
  - Incorrect drug administration duration [Unknown]
  - Accidental exposure to product [Unknown]
  - Product physical issue [Unknown]
